FAERS Safety Report 20870652 (Version 1)
Quarter: 2022Q2

REPORT INFORMATION
  Report Type: Spontaneous
  Country: CA (occurrence: None)
  Receive Date: 20220525
  Receipt Date: 20220525
  Transmission Date: 20220721
  Serious: Yes (Hospitalization)
  Sender: FDA-Public Use
  Company Number: CA-ROCHE-3101896

PATIENT
  Age: 63 Year
  Sex: Male

DRUGS (2)
  1. CLONAZEPAM [Suspect]
     Active Substance: CLONAZEPAM
     Indication: Stress
     Dosage: DRUG DOSE FIRST ADMINISTERED IS 0.5 MILLIGRAM
     Route: 065
  2. CLONAZEPAM [Suspect]
     Active Substance: CLONAZEPAM
     Indication: Sleep disorder
     Dosage: DRUG DOSE FIRST ADMINISTERED IS 2.0 MILLIGRAM
     Route: 065

REACTIONS (5)
  - Hypertension [Unknown]
  - Product use in unapproved indication [Unknown]
  - Intentional product misuse [Unknown]
  - Seizure [Unknown]
  - Incorrect product administration duration [Unknown]
